FAERS Safety Report 7825865-2 (Version None)
Quarter: 2011Q4

REPORT INFORMATION
  Report Type: 
  Country: None (occurrence: None)
  Receive Date: 20111019
  Receipt Date: 20111005
  Transmission Date: 20120403
  Serious: Yes (Hospitalization, Other)
  Sender: FDA-Public Use
  Company Number: JP-ROCHE-1003720

PATIENT
  Age: 44 Year
  Sex: Female

DRUGS (7)
  1. HERCEPTIN [Suspect]
     Dosage: DOSAGE IS UNCERTAIN.
     Route: 041
  2. TS-1 [Concomitant]
     Indication: BREAST CANCER METASTATIC
     Dosage: DOSAGE IS UNCERTAIN.
     Route: 048
  3. HERCEPTIN [Suspect]
     Dosage: DOSAGE IS UNCERTAIN.
     Route: 041
  4. XELODA [Concomitant]
     Indication: BREAST CANCER METASTATIC
     Dosage: DOSAGE IS UNCERTAIN.
     Route: 048
  5. HERCEPTIN [Suspect]
     Indication: BREAST CANCER METASTATIC
     Dosage: DOSAGE IS UNCERTAIN.
     Route: 041
  6. DOCETAXEL [Concomitant]
     Indication: BREAST CANCER METASTATIC
     Dosage: DOSAGE IS UNCERTAIN.
     Route: 041
  7. VINORELBINE [Concomitant]
     Indication: BREAST CANCER METASTATIC
     Dosage: DOSAGE IS UNCERTAIN.
     Route: 041

REACTIONS (2)
  - CARDIAC FAILURE [None]
  - INTRACARDIAC THROMBUS [None]
